FAERS Safety Report 9735886 (Version 1)
Quarter: 2013Q4

REPORT INFORMATION
  Report Type: Spontaneous
  Country: US (occurrence: None)
  Receive Date: 20131205
  Receipt Date: 20131205
  Transmission Date: 20140711
  Serious: No
  Sender: FDA-Public Use
  Company Number: None

PATIENT
  Age: 16 Year
  Sex: Female

DRUGS (1)
  1. ZIPRASIDONE HCL [Suspect]
     Indication: AFFECTIVE DISORDER
     Dates: start: 20130724

REACTIONS (2)
  - Nausea [None]
  - Vomiting [None]
